FAERS Safety Report 6306727-9 (Version None)
Quarter: 2009Q3

REPORT INFORMATION
  Report Type: 
  Country: None (occurrence: None)
  Receive Date: 20090812
  Receipt Date: 20090615
  Transmission Date: 20100115
  Serious: No
  Sender: FDA-Public Use
  Company Number: A0791571A

PATIENT
  Sex: Female

DRUGS (2)
  1. VERAMYST [Suspect]
     Dosage: 2SPR PER DAY
     Route: 045
     Dates: start: 20090501
  2. PREDNISONE [Concomitant]

REACTIONS (4)
  - BACK PAIN [None]
  - LOCAL SWELLING [None]
  - SWELLING FACE [None]
  - WEIGHT INCREASED [None]
